FAERS Safety Report 9498952 (Version 1)
Quarter: 2013Q3

REPORT INFORMATION
  Report Type: Spontaneous
  Country: NO (occurrence: NO)
  Receive Date: 20130904
  Receipt Date: 20130904
  Transmission Date: 20140515
  Serious: Yes (Other)
  Sender: FDA-Public Use
  Company Number: NO-TEVA-428953ISR

PATIENT
  Sex: Male

DRUGS (1)
  1. TRAMADOL [Suspect]
     Route: 048

REACTIONS (1)
  - Eye haemorrhage [Recovered/Resolved]
